FAERS Safety Report 24350541 (Version 1)
Quarter: 2024Q3

REPORT INFORMATION
  Report Type: Report from Study
  Country: US (occurrence: US)
  Receive Date: 20240923
  Receipt Date: 20240923
  Transmission Date: 20241017
  Serious: No
  Sender: ROCHE
  Company Number: US-ROCHE-3516924

PATIENT
  Age: 45 Year
  Sex: Female

DRUGS (6)
  1. HERCEPTIN [Suspect]
     Active Substance: TRASTUZUMAB
     Indication: Breast cancer female
     Route: 065
  2. HERCEPTIN [Suspect]
     Active Substance: TRASTUZUMAB
     Indication: Oestrogen receptor assay negative
  3. ZYRTEC [Concomitant]
     Active Substance: CETIRIZINE HYDROCHLORIDE
  4. PEPCID [Concomitant]
     Active Substance: FAMOTIDINE
  5. DECADRON [Concomitant]
     Active Substance: DEXAMETHASONE
  6. SODIUM CHLORIDE [Concomitant]
     Active Substance: SODIUM CHLORIDE

REACTIONS (4)
  - Maternal exposure timing unspecified [Unknown]
  - Anaemia [Unknown]
  - Obesity [Unknown]
  - Off label use [Unknown]
